FAERS Safety Report 6023524-2 (Version None)
Quarter: 2008Q4

REPORT INFORMATION
  Report Type: 
  Country: None (occurrence: None)
  Receive Date: 20081226
  Receipt Date: 20081226
  Transmission Date: 20090506
  Serious: No
  Sender: FDA-Public Use
  Company Number: None

PATIENT
  Age: 46 Year
  Sex: Female
  Weight: 62 kg

DRUGS (4)
  1. VARENICLINE [Suspect]
     Indication: ASTHMA
     Dosage: 1 MG BID PO, 10MG EVERY DAY PO
     Route: 048
     Dates: start: 20071227, end: 20080310
  2. VARENICLINE [Suspect]
     Indication: SMOKING CESSATION THERAPY
     Dosage: 1 MG BID PO, 10MG EVERY DAY PO
     Route: 048
     Dates: start: 20071227, end: 20080310
  3. VARENICLINE [Suspect]
     Indication: ASTHMA
     Dosage: 1 MG BID PO, 10MG EVERY DAY PO
     Route: 048
     Dates: start: 20060131, end: 20080429
  4. VARENICLINE [Suspect]
     Indication: SMOKING CESSATION THERAPY
     Dosage: 1 MG BID PO, 10MG EVERY DAY PO
     Route: 048
     Dates: start: 20060131, end: 20080429

REACTIONS (3)
  - DEPRESSION [None]
  - MOOD ALTERED [None]
  - SUICIDAL IDEATION [None]
